FAERS Safety Report 6332089-7 (Version None)
Quarter: 2009Q3

REPORT INFORMATION
  Report Type: 
  Country: None (occurrence: None)
  Receive Date: 20090828
  Receipt Date: 20080118
  Transmission Date: 20100115
  Serious: Yes (Other)
  Sender: FDA-Public Use
  Company Number: US-ASTRAZENECA-2007UW24434

PATIENT
  Age: 545 Month
  Sex: Female
  Weight: 104.3 kg

DRUGS (10)
  1. SEROQUEL [Suspect]
     Indication: ANXIETY
     Dosage: 25 MG, 50 MG, 100 MG
     Route: 048
     Dates: start: 20031001
  2. SEROQUEL [Suspect]
     Dosage: 25 MG - 200 MG
     Route: 048
     Dates: start: 20050228
  3. TEGRETOL [Concomitant]
     Route: 048
     Dates: start: 20010101
  4. TEGRETOL [Concomitant]
     Dosage: DOSE 800 MG DAILY
     Dates: start: 20050228
  5. EFFEXOR XR [Concomitant]
     Route: 048
     Dates: start: 20000101
  6. EFFEXOR XR [Concomitant]
     Route: 048
     Dates: start: 20050228
  7. CHROMIUM PICOLINATE [Concomitant]
     Route: 048
  8. NEURONTIN [Concomitant]
     Dates: start: 20050228
  9. PAXIL [Concomitant]
     Dates: start: 20010128
  10. TRAZODONE HCL [Concomitant]
     Dosage: DOSE 50 MG - 100 MG AS REQUIRED
     Dates: start: 20010128

REACTIONS (3)
  - BLOOD CHOLESTEROL INCREASED [None]
  - DIABETES MELLITUS [None]
  - NEUROPATHY PERIPHERAL [None]
